FAERS Safety Report 6231687-9 (Version None)
Quarter: 2009Q2

REPORT INFORMATION
  Report Type: 
  Country: None (occurrence: None)
  Receive Date: 20090616
  Receipt Date: 20090612
  Transmission Date: 20091009
  Serious: No
  Sender: FDA-Public Use
  Company Number: US-B.I. PHARMACEUTICALS,INC./RIDGEFIELD-2009-BP-07263BP

PATIENT
  Sex: Female

DRUGS (5)
  1. SPIRIVA [Suspect]
     Indication: CHRONIC OBSTRUCTIVE PULMONARY DISEASE
     Dosage: 18MCG
     Route: 055
     Dates: start: 20090401, end: 20090609
  2. METFORMIN HCL [Concomitant]
     Indication: DIABETES MELLITUS
     Dates: start: 19990101
  3. AVANDIA [Concomitant]
     Indication: DIABETES MELLITUS
     Dates: start: 19990101
  4. LOVASTATIN [Concomitant]
     Indication: BLOOD CHOLESTEROL INCREASED
     Dates: start: 19990101
  5. DIOVAN [Concomitant]
     Indication: HYPERTENSION
     Dates: start: 20060101

REACTIONS (6)
  - CHEILITIS [None]
  - COUGH [None]
  - LIP BLISTER [None]
  - OROPHARYNGEAL PAIN [None]
  - PALATAL DISORDER [None]
  - SINUSITIS [None]
